FAERS Safety Report 4866785-5 (Version None)
Quarter: 2005Q4

REPORT INFORMATION
  Report Type: 
  Country: None (occurrence: None)
  Receive Date: 20051222
  Receipt Date: 20051219
  Transmission Date: 20060501
  Serious: Yes (Life-Threatening, Hospitalization)
  Sender: FDA-Public Use
  Company Number: A-CH2005-11103

PATIENT
  Age: 3 Year
  Sex: Female
  Weight: 15.4 kg

DRUGS (4)
  1. ZAVESCA [Suspect]
     Indication: TAY-SACHS DISEASE
     Dosage: 100 MG QD ORAL
     Route: 048
     Dates: start: 20030513, end: 20051121
  2. PHENOBARBITAL TAB [Concomitant]
  3. VALPROATE SODIUM [Concomitant]
  4. OMEPRAZOLE [Concomitant]

REACTIONS (2)
  - LACTIC ACIDOSIS [None]
  - PNEUMONIA [None]
